FAERS Safety Report 25829226 (Version 1)
Quarter: 2025Q3

REPORT INFORMATION
  Report Type: Spontaneous
  Country: IN (occurrence: IN)
  Receive Date: 20250922
  Receipt Date: 20250922
  Transmission Date: 20251020
  Serious: Yes (Hospitalization)
  Sender: SANDOZ
  Company Number: IN-SANDOZ-SDZ2025IN068275

PATIENT
  Age: 52 Year
  Sex: Male

DRUGS (13)
  1. ATAZANAVIR\RITONAVIR [Suspect]
     Active Substance: ATAZANAVIR\RITONAVIR
     Indication: Potentiating drug interaction
     Route: 065
  2. ATAZANAVIR\RITONAVIR [Suspect]
     Active Substance: ATAZANAVIR\RITONAVIR
     Indication: Potentiating drug interaction
     Route: 065
  3. FLUCONAZOLE [Suspect]
     Active Substance: FLUCONAZOLE
     Indication: Potentiating drug interaction
     Route: 065
  4. RITONAVIR [Suspect]
     Active Substance: RITONAVIR
     Indication: Potentiating drug interaction
     Route: 065
  5. TACROLIMUS [Suspect]
     Active Substance: TACROLIMUS
     Dosage: 1.0 MG, BID
     Route: 065
  6. TACROLIMUS [Suspect]
     Active Substance: TACROLIMUS
     Indication: Immunosuppressant drug therapy
     Dosage: 1.75 MG, BID
     Route: 065
  7. ABACAVIR [Concomitant]
     Active Substance: ABACAVIR
     Indication: Antiretroviral therapy
     Route: 065
  8. DOLUTEGRAVIR [Concomitant]
     Active Substance: DOLUTEGRAVIR
     Indication: Antiretroviral therapy
     Route: 065
  9. DOLUTEGRAVIR [Concomitant]
     Active Substance: DOLUTEGRAVIR
     Indication: Antiretroviral therapy
     Route: 065
  10. LAMIVUDINE [Concomitant]
     Active Substance: LAMIVUDINE
     Indication: Antiretroviral therapy
     Route: 065
  11. LAMIVUDINE [Concomitant]
     Active Substance: LAMIVUDINE
     Indication: Antiretroviral therapy
     Route: 065
  12. MYCOPHENOLIC ACID [Concomitant]
     Active Substance: MYCOPHENOLIC ACID
     Indication: Immunosuppressant drug therapy
     Route: 065
  13. PREDNISOLONE [Concomitant]
     Active Substance: PREDNISOLONE
     Indication: Immunosuppressant drug therapy
     Route: 065

REACTIONS (22)
  - Gait disturbance [Unknown]
  - Dysphagia [Unknown]
  - Mental disorder [Unknown]
  - Decreased appetite [Unknown]
  - Electrolyte imbalance [Unknown]
  - Abdominal distension [Unknown]
  - Toxicity to various agents [Unknown]
  - Drug interaction [Unknown]
  - Drug level increased [Unknown]
  - Back pain [Unknown]
  - Blood creatinine increased [Unknown]
  - Stomatitis [Unknown]
  - Confusional state [Unknown]
  - Nausea [Unknown]
  - Myalgia [Unknown]
  - Somnolence [Unknown]
  - Asthenia [Unknown]
  - Headache [Unknown]
  - Weight decreased [Unknown]
  - Constipation [Unknown]
  - Hyperglycaemia [Unknown]
  - Arthralgia [Unknown]
